FAERS Safety Report 21425795 (Version 2)
Quarter: 2022Q4

REPORT INFORMATION
  Report Type: Report from Study
  Country: US (occurrence: US)
  Receive Date: 20221008
  Receipt Date: 20221126
  Transmission Date: 20230113
  Serious: No
  Sender: FDA-Public Use
  Company Number: US-ABBVIE-4139391

PATIENT
  Sex: Female

DRUGS (1)
  1. SKYRIZI [Suspect]
     Active Substance: RISANKIZUMAB-RZAA
     Indication: Psoriasis
     Dosage: FORM STRENGTH: 150 MG
     Route: 058
     Dates: start: 20220608

REACTIONS (7)
  - Upper respiratory tract infection [Unknown]
  - Pain [Unknown]
  - Sinusitis [Unknown]
  - Psoriasis [Unknown]
  - Pharyngitis [Unknown]
  - Ear infection [Unknown]
  - Therapeutic response shortened [Unknown]
